FAERS Safety Report 7445155-X (Version None)
Quarter: 2011Q2

REPORT INFORMATION
  Report Type: 
  Country: None (occurrence: None)
  Receive Date: 20110419
  Receipt Date: 20110412
  Transmission Date: 20111010
  Serious: No
  Sender: FDA-Public Use
  Company Number: B0713522A

PATIENT
  Sex: Female

DRUGS (2)
  1. DACTINOMYCIN [Suspect]
     Indication: MALIGNANT MELANOMA
  2. MELPHALAN HYDROCHLORIDE [Suspect]
     Indication: MALIGNANT MELANOMA
     Dosage: SEE TEXT

REACTIONS (1)
  - TOXICITY TO VARIOUS AGENTS [None]
